FAERS Safety Report 25332475 (Version 2)
Quarter: 2025Q2

REPORT INFORMATION
  Report Type: Spontaneous
  Country: CH (occurrence: CH)
  Receive Date: 20250519
  Receipt Date: 20250522
  Transmission Date: 20250716
  Serious: Yes (Hospitalization, Other)
  Sender: SANDOZ
  Company Number: CH-SANDOZ-SDZ2025CH032402

PATIENT
  Age: 64 Year
  Sex: Male

DRUGS (3)
  1. AMOXICILLIN [Suspect]
     Active Substance: AMOXICILLIN
     Dosage: 3?2 G/D
     Route: 042
  2. AMOXICILLIN [Suspect]
     Active Substance: AMOXICILLIN
     Indication: Product used for unknown indication
     Dosage: 6?2 G/DAY
     Route: 042
  3. GENTAMICIN [Suspect]
     Active Substance: GENTAMICIN
     Indication: Product used for unknown indication
     Dosage: 240 MG, QD
     Route: 065

REACTIONS (3)
  - Calculus urinary [Unknown]
  - Acute kidney injury [Unknown]
  - Hydronephrosis [Unknown]
